FAERS Safety Report 9062225 (Version 1)
Quarter: 2013Q1

REPORT INFORMATION
  Report Type: Spontaneous
  Country: US (occurrence: None)
  Receive Date: 20130122
  Receipt Date: 20130122
  Transmission Date: 20140127
  Serious: Yes (Hospitalization)
  Sender: FDA-Public Use
  Company Number: 1557760

PATIENT
  Age: 25 Year
  Sex: Male

DRUGS (4)
  1. METHOTREXATE [Suspect]
     Indication: OSTEOSARCOMA
     Dosage: NOT REPORTED, UNKNOWN, INTRAVENOUS DRIP
     Route: 041
  2. OMEPRAZOLE [Suspect]
     Indication: STRESS ULCER
  3. OMEPRAZOLE [Suspect]
     Indication: PROPHYLAXIS
  4. DEXAMETHASONE [Concomitant]

REACTIONS (9)
  - Grand mal convulsion [None]
  - Renal failure acute [None]
  - Mucosal inflammation [None]
  - Thrombocytopenia [None]
  - Drug interaction [None]
  - Haemodialysis [None]
  - Toxicity to various agents [None]
  - Chemotherapeutic drug level increased [None]
  - Drug clearance decreased [None]
